FAERS Safety Report 5893118-8 (Version None)
Quarter: 2008Q3

REPORT INFORMATION
  Report Type: 
  Country: None (occurrence: None)
  Receive Date: 20080922
  Receipt Date: 20080922
  Transmission Date: 20090109
  Serious: Yes (Life-Threatening, Other)
  Sender: FDA-Public Use
  Company Number: None

PATIENT
  Sex: Male
  Weight: 80.7403 kg

DRUGS (2)
  1. EFFEXOR XR [Suspect]
     Indication: ANXIETY
     Dosage: 300 MG DAILY PO
     Route: 048
  2. EFFEXOR XR [Suspect]
     Indication: DEPRESSION
     Dosage: 300 MG DAILY PO
     Route: 048

REACTIONS (8)
  - CONFUSIONAL STATE [None]
  - DRUG DOSE OMISSION [None]
  - MALAISE [None]
  - PAIN [None]
  - SUICIDAL IDEATION [None]
  - THINKING ABNORMAL [None]
  - TREMOR [None]
  - WITHDRAWAL SYNDROME [None]
